FAERS Safety Report 23949676 (Version 3)
Quarter: 2024Q3

REPORT INFORMATION
  Report Type: Spontaneous
  Country: US (occurrence: None)
  Receive Date: 20240607
  Receipt Date: 20240709
  Transmission Date: 20241017
  Serious: No
  Sender: ASTRAZENECA
  Company Number: 2024A116053

PATIENT
  Age: 69 Year
  Sex: Male
  Weight: 102.1 kg

DRUGS (2)
  1. TEZSPIRE [Suspect]
     Active Substance: TEZEPELUMAB-EKKO
     Indication: Dyspnoea
     Route: 030
     Dates: start: 20240318, end: 20240318
  2. TEZSPIRE [Suspect]
     Active Substance: TEZEPELUMAB-EKKO
     Indication: Dyspnoea
     Route: 030
     Dates: start: 20240422, end: 20240422

REACTIONS (6)
  - Pain [Recovering/Resolving]
  - Tendonitis [Unknown]
  - Ligament sprain [Not Recovered/Not Resolved]
  - Pain in extremity [Not Recovered/Not Resolved]
  - Incorrect route of product administration [Unknown]
  - Arthralgia [Not Recovered/Not Resolved]

NARRATIVE: CASE EVENT DATE: 20240422
